FAERS Safety Report 15049324 (Version 1)
Quarter: 2018Q2

REPORT INFORMATION
  Report Type: Spontaneous
  Country: US (occurrence: US)
  Receive Date: 20180622
  Receipt Date: 20180622
  Transmission Date: 20180711
  Serious: Yes (Hospitalization)
  Sender: FDA-Public Use
  Company Number: US-ENDO PHARMACEUTICALS INC-2018-039765

PATIENT
  Age: 60 Year
  Sex: Male

DRUGS (1)
  1. BACLOFEN TABLETS 20MG [Suspect]
     Active Substance: BACLOFEN
     Indication: HICCUPS
     Dosage: 20 MG, TID
     Route: 065

REACTIONS (3)
  - Hypertension [Recovered/Resolved]
  - Off label use [Unknown]
  - Toxicity to various agents [Recovered/Resolved]
